FAERS Safety Report 8314692-8 (Version None)
Quarter: 2012Q2

REPORT INFORMATION
  Report Type: 
  Country: None (occurrence: None)
  Receive Date: 20120426
  Receipt Date: 20120417
  Transmission Date: 20120825
  Serious: Yes (Life-Threatening, Hospitalization)
  Sender: FDA-Public Use
  Company Number: DK-ELI_LILLY_AND_COMPANY-DK201204005545

PATIENT
  Sex: Male

DRUGS (8)
  1. RAMIPRIL [Concomitant]
  2. OLANZAPINE [Suspect]
     Indication: SCHIZOPHRENIA
     Dosage: 405 MG, Q 14 DAYS
     Dates: start: 20120312
  3. ABILIFY [Concomitant]
     Dosage: 10 MG, QD
  4. CLOZAPINE [Concomitant]
     Dosage: 150 MG, QD
  5. AKINETON [Concomitant]
  6. OXAZEPAM [Concomitant]
  7. EGAZIL [Concomitant]
  8. ANTABUSE [Concomitant]

REACTIONS (6)
  - DYSPNOEA [None]
  - DYSTONIA [None]
  - OCULOGYRIC CRISIS [None]
  - UNRESPONSIVE TO STIMULI [None]
  - OVERDOSE [None]
  - HYPERTENSION [None]
